FAERS Safety Report 8433335-6 (Version None)
Quarter: 2012Q2

REPORT INFORMATION
  Report Type: 
  Country: None (occurrence: None)
  Receive Date: 20120323
  Receipt Date: 20110929
  Transmission Date: 20120825
  Serious: Yes (Hospitalization, Other)
  Sender: FDA-Public Use
  Company Number: 163-21880-11070837

PATIENT
  Age: 65 Year
  Sex: Male

DRUGS (11)
  1. QUINAPRIL (QUINAPRIL) (UNKNOWN) [Concomitant]
  2. HYDROCHLOROTHIAZIDE [Concomitant]
  3. REVLIMID [Suspect]
     Indication: DISEASE PROGRESSION
     Dosage: 25 MG, 1 IN 1 D, PO   20 MG, 2 IN 1 D, PO   10 MG, 1 IN 1 D, PO
     Route: 048
     Dates: start: 20100201
  4. REVLIMID [Suspect]
     Indication: MULTIPLE MYELOMA
     Dosage: 25 MG, 1 IN 1 D, PO   20 MG, 2 IN 1 D, PO   10 MG, 1 IN 1 D, PO
     Route: 048
     Dates: start: 20100201
  5. REVLIMID [Suspect]
     Indication: DISEASE PROGRESSION
     Dosage: 25 MG, 1 IN 1 D, PO   20 MG, 2 IN 1 D, PO   10 MG, 1 IN 1 D, PO
     Route: 048
     Dates: start: 20100301
  6. REVLIMID [Suspect]
     Indication: MULTIPLE MYELOMA
     Dosage: 25 MG, 1 IN 1 D, PO   20 MG, 2 IN 1 D, PO   10 MG, 1 IN 1 D, PO
     Route: 048
     Dates: start: 20100301
  7. REVLIMID [Suspect]
     Indication: DISEASE PROGRESSION
     Dosage: 25 MG, 1 IN 1 D, PO   20 MG, 2 IN 1 D, PO   10 MG, 1 IN 1 D, PO
     Route: 048
     Dates: start: 20101001
  8. REVLIMID [Suspect]
     Indication: MULTIPLE MYELOMA
     Dosage: 25 MG, 1 IN 1 D, PO   20 MG, 2 IN 1 D, PO   10 MG, 1 IN 1 D, PO
     Route: 048
     Dates: start: 20101001
  9. ASPIRIN [Concomitant]
  10. REVLIMID [Suspect]
  11. TOPROL-XL [Concomitant]

REACTIONS (3)
  - DISEASE PROGRESSION [None]
  - MULTIPLE MYELOMA [None]
  - VENOUS THROMBOSIS LIMB [None]
